FAERS Safety Report 14110876 (Version 3)
Quarter: 2018Q1

REPORT INFORMATION
  Report Type: Report from Study
  Country: US (occurrence: US)
  Receive Date: 20171020
  Receipt Date: 20180222
  Transmission Date: 20180508
  Serious: Yes (Death, Hospitalization)
  Sender: FDA-Public Use
  Company Number: US-ROCHE-1985353

PATIENT
  Age: 58 Year
  Sex: Male
  Weight: 102 kg

DRUGS (38)
  1. ATEZOLIZUMAB. [Suspect]
     Active Substance: ATEZOLIZUMAB
     Indication: NON-SMALL CELL LUNG CANCER
     Dosage: ON DAY 1 OF EACH 21-DAY CYCLE
     Route: 042
  2. OXYCODONE [Concomitant]
     Active Substance: OXYCODONE
     Route: 065
     Dates: start: 20170827
  3. OXYCODONE [Concomitant]
     Active Substance: OXYCODONE
     Route: 065
     Dates: start: 20170826, end: 20170826
  4. OXYCODONE [Concomitant]
     Active Substance: OXYCODONE
     Route: 065
     Dates: start: 20170906, end: 20170906
  5. OXYCODONE [Concomitant]
     Active Substance: OXYCODONE
     Route: 065
     Dates: start: 20170905, end: 20170906
  6. FENTANYL. [Concomitant]
     Active Substance: FENTANYL
     Dosage: PATCH
     Route: 065
     Dates: start: 20170826
  7. OXYCODONE [Concomitant]
     Active Substance: OXYCODONE
     Route: 065
     Dates: start: 20170912, end: 20170914
  8. OXYCODONE [Concomitant]
     Active Substance: OXYCODONE
     Route: 065
     Dates: start: 20170914, end: 20170918
  9. ACETAMINOPHEN. [Concomitant]
     Active Substance: ACETAMINOPHEN
     Route: 065
     Dates: start: 20170825, end: 20170825
  10. HYDROMORPHONE [Concomitant]
     Active Substance: HYDROMORPHONE
     Route: 048
     Dates: start: 20170921, end: 20170922
  11. HYDROMORPHONE [Concomitant]
     Active Substance: HYDROMORPHONE
     Dosage: HYDROMORPHONE PCA
     Route: 065
     Dates: start: 20170906, end: 20170921
  12. HYDROMORPHONE [Concomitant]
     Active Substance: HYDROMORPHONE
     Dosage: HYDROMORPHONE PCA
     Route: 065
     Dates: start: 20170906, end: 20170921
  13. ADENOSINE. [Concomitant]
     Active Substance: ADENOSINE
     Route: 040
     Dates: start: 20170921, end: 20170921
  14. PIPERACILLIN/TAZOBACTAM [Concomitant]
     Active Substance: PIPERACILLIN SODIUM\TAZOBACTAM SODIUM
     Route: 065
     Dates: start: 20170916, end: 20170922
  15. OXYCODONE [Concomitant]
     Active Substance: OXYCODONE
     Route: 065
     Dates: start: 20170918, end: 20170920
  16. ARIXTRA [Concomitant]
     Active Substance: FONDAPARINUX SODIUM
     Route: 065
     Dates: start: 20170915, end: 20170916
  17. ADENOSINE. [Concomitant]
     Active Substance: ADENOSINE
     Route: 041
     Dates: start: 20170921, end: 20170921
  18. METHYLPREDNISOLONE. [Concomitant]
     Active Substance: METHYLPREDNISOLONE
     Route: 042
     Dates: start: 20170911, end: 20170920
  19. ALBUMIN [Concomitant]
     Active Substance: ALBUMIN HUMAN
     Dosage: IVPB
     Route: 065
     Dates: start: 20170921, end: 20170921
  20. ENOXAPARIN [Concomitant]
     Active Substance: ENOXAPARIN
     Route: 065
     Dates: start: 20170828, end: 20170828
  21. HYDROMORPHONE [Concomitant]
     Active Substance: HYDROMORPHONE
     Route: 065
     Dates: start: 20170825, end: 20170825
  22. METHYLPREDNISOLONE. [Concomitant]
     Active Substance: METHYLPREDNISOLONE
     Route: 042
     Dates: start: 20170907, end: 20170911
  23. LEVOFLOXIN [Concomitant]
     Active Substance: LEVOFLOXACIN
     Route: 065
     Dates: start: 20170905, end: 20170909
  24. PROPOFOL. [Concomitant]
     Active Substance: PROPOFOL
     Route: 065
     Dates: start: 20170915, end: 20170915
  25. LOPRESSOR [Concomitant]
     Active Substance: METOPROLOL TARTRATE
     Route: 065
     Dates: start: 20170912, end: 20170912
  26. ARIXTRA [Concomitant]
     Active Substance: FONDAPARINUX SODIUM
     Route: 058
     Dates: start: 20170912, end: 20170916
  27. ENOXAPARIN [Concomitant]
     Active Substance: ENOXAPARIN
     Route: 058
     Dates: start: 20170920, end: 20170922
  28. METHYLPREDNISOLONE. [Concomitant]
     Active Substance: METHYLPREDNISOLONE
     Route: 042
     Dates: start: 20170920, end: 20170921
  29. LEVOFLOXIN [Concomitant]
     Active Substance: LEVOFLOXACIN
     Route: 042
     Dates: start: 20170916, end: 20170921
  30. LORAZEPAM. [Concomitant]
     Active Substance: LORAZEPAM
     Route: 042
     Dates: start: 20170916, end: 20170916
  31. MS CONTIN [Concomitant]
     Active Substance: MORPHINE SULFATE
     Route: 065
     Dates: start: 20170827
  32. COLACE [Concomitant]
     Active Substance: DOCUSATE SODIUM
     Route: 065
     Dates: start: 20170826
  33. CARDIZEM [Concomitant]
     Active Substance: DILTIAZEM HYDROCHLORIDE
     Dosage: 125MG IN 125ML }9 NSS 5 TO 15 MG/HR
     Route: 040
     Dates: start: 20170912, end: 20170912
  34. HYDROMORPHONE [Concomitant]
     Active Substance: HYDROMORPHONE
     Route: 042
     Dates: start: 20170919, end: 20170919
  35. ADENOSINE. [Concomitant]
     Active Substance: ADENOSINE
     Indication: SUPRAVENTRICULAR TACHYCARDIA
     Route: 040
     Dates: start: 20170921, end: 20170921
  36. CARDIZEM [Concomitant]
     Active Substance: DILTIAZEM HYDROCHLORIDE
     Dosage: 100 MG IN 100 ML D5W 5 TO 15 MG/HR
     Route: 042
     Dates: start: 20170912, end: 20170915
  37. MORPHINE ER [Concomitant]
     Active Substance: MORPHINE
     Route: 065
     Dates: start: 20170912, end: 20170913
  38. BUDESONIDE. [Concomitant]
     Active Substance: BUDESONIDE
     Route: 050
     Dates: start: 20170906, end: 20170922

REACTIONS (8)
  - Haemoptysis [Recovered/Resolved]
  - Supraventricular tachycardia [Recovered/Resolved]
  - Musculoskeletal chest pain [Not Recovered/Not Resolved]
  - Atrial fibrillation [Recovered/Resolved]
  - Pulmonary haemorrhage [Recovered/Resolved]
  - Respiratory failure [Not Recovered/Not Resolved]
  - Pneumonia [Fatal]
  - Pneumonitis [Not Recovered/Not Resolved]

NARRATIVE: CASE EVENT DATE: 20170825
